FAERS Safety Report 11792302 (Version 2)
Quarter: 2015Q4

REPORT INFORMATION
  Report Type: Spontaneous
  Country: HR (occurrence: HR)
  Receive Date: 20151201
  Receipt Date: 20151216
  Transmission Date: 20160305
  Serious: Yes (Death)
  Sender: FDA-Public Use
  Company Number: HR-HOSPIRA-3091590

PATIENT
  Age: 63 Year
  Sex: Female

DRUGS (4)
  1. CANCIDAS [Suspect]
     Active Substance: CASPOFUNGIN ACETATE
     Indication: ANTIBIOTIC THERAPY
     Dates: start: 20151007, end: 20151011
  2. LINEZOLID. [Suspect]
     Active Substance: LINEZOLID
     Indication: ANTIBIOTIC THERAPY
     Route: 042
     Dates: start: 20150928, end: 20151011
  3. COLISTIN [Suspect]
     Active Substance: COLISTIN
     Indication: ANTIBIOTIC THERAPY
     Route: 042
     Dates: start: 20150925, end: 20151011
  4. LINEZOLID. [Suspect]
     Active Substance: LINEZOLID
     Indication: ANTIBIOTIC THERAPY
     Route: 042
     Dates: start: 20150914, end: 20150921

REACTIONS (9)
  - Thermal burn [Fatal]
  - Pneumonia [Fatal]
  - Cardiac arrest [Fatal]
  - Circulatory collapse [Fatal]
  - Cardiac failure [Fatal]
  - Sepsis [Fatal]
  - Renal failure [Fatal]
  - Septic shock [Fatal]
  - Multi-organ failure [Fatal]

NARRATIVE: CASE EVENT DATE: 20151011
